FAERS Safety Report 25290554 (Version 1)
Quarter: 2025Q2

REPORT INFORMATION
  Report Type: Spontaneous
  Country: JP (occurrence: JP)
  Receive Date: 20250510
  Receipt Date: 20250510
  Transmission Date: 20250716
  Serious: Yes (Death, Other)
  Sender: AMGEN
  Company Number: JP-AMGEN-JPNSP2025090448

PATIENT

DRUGS (2)
  1. BLINATUMOMAB [Suspect]
     Active Substance: BLINATUMOMAB
     Indication: Acute leukaemia
     Dosage: 9 MICROGRAM, QD, FIRST 7 DAYS
     Route: 040
  2. BLINATUMOMAB [Suspect]
     Active Substance: BLINATUMOMAB
     Dosage: 28 MICROGRAM, QD, FROM DAY 8 TO DAY 28
     Route: 040

REACTIONS (12)
  - Death [Fatal]
  - Acute leukaemia [Fatal]
  - Infection [Fatal]
  - Acute graft versus host disease [Fatal]
  - Hepatic failure [Fatal]
  - Haemorrhage [Fatal]
  - Respiratory failure [Fatal]
  - Renal failure [Fatal]
  - Neoplasm malignant [Fatal]
  - Venoocclusive liver disease [Unknown]
  - Chronic graft versus host disease [Unknown]
  - Venoocclusive disease [Unknown]
